FAERS Safety Report 7981169-9 (Version None)
Quarter: 2011Q4

REPORT INFORMATION
  Report Type: 
  Country: None (occurrence: None)
  Receive Date: 20111129
  Receipt Date: 20110822
  Transmission Date: 20120403
  Serious: Yes (Disabling)
  Sender: FDA-Public Use
  Company Number: PHHY2011US53125

PATIENT
  Sex: Male
  Weight: 86 kg

DRUGS (2)
  1. PRAVASTATIN [Concomitant]
  2. LAMISIL [Suspect]
     Indication: ONYCHOMYCOSIS
     Dosage: 250 MG, ORAL
     Route: 048
     Dates: start: 20110415, end: 20110601

REACTIONS (1)
  - AGEUSIA [None]
